FAERS Safety Report 6755684-X (Version None)
Quarter: 2010Q2

REPORT INFORMATION
  Report Type: 
  Country: None (occurrence: None)
  Receive Date: 20100604
  Receipt Date: 20100601
  Transmission Date: 20101027
  Serious: Yes (Other)
  Sender: FDA-Public Use
  Company Number: US-WYE-H14531310

PATIENT
  Sex: Male

DRUGS (3)
  1. ROBITUSSIN COUGH AND CHEST CONGESTION DM [Suspect]
     Indication: EUPHORIC MOOD
     Dosage: ONE BOTTLE DAILY
     Route: 048
     Dates: start: 20090101
  2. QUETIAPINE [Concomitant]
     Indication: DRUG USE FOR UNKNOWN INDICATION
     Dosage: UNKNOWN
     Route: 065
  3. CONCERTA [Concomitant]
     Indication: DRUG USE FOR UNKNOWN INDICATION

REACTIONS (3)
  - DRUG ABUSE [None]
  - HALLUCINATION [None]
  - INTENTIONAL OVERDOSE [None]
